FAERS Safety Report 5281114-3 (Version None)
Quarter: 2007Q1

REPORT INFORMATION
  Report Type: 
  Country: None (occurrence: None)
  Receive Date: 20070323
  Receipt Date: 20070313
  Transmission Date: 20070707
  Serious: Yes (Other)
  Sender: FDA-Public Use
  Company Number: CHNY2007GB01302

PATIENT
  Age: 45 Year
  Sex: Male

DRUGS (1)
  1. NICOTINE [Suspect]
     Dosage: UNK, UNK, TRANSDERMAL
     Route: 062

REACTIONS (4)
  - NEOPLASM MALIGNANT [None]
  - PROCEDURAL COMPLICATION [None]
  - TONSILLECTOMY [None]
  - VASOCONSTRICTION [None]
